FAERS Safety Report 5449144-6 (Version None)
Quarter: 2007Q3

REPORT INFORMATION
  Report Type: 
  Country: None (occurrence: None)
  Receive Date: 20070911
  Receipt Date: 20070907
  Transmission Date: 20080115
  Serious: Yes (Hospitalization)
  Sender: FDA-Public Use
  Company Number: CH-ROXANE LABORATORIES, INC-2007-DE-05067GD

PATIENT
  Sex: Male

DRUGS (8)
  1. PREDNISONE [Suspect]
     Indication: ASTHMA
     Route: 048
  2. PREDNISONE [Suspect]
     Route: 048
  3. SINGULAIR [Suspect]
     Indication: ASTHMA
     Route: 048
  4. THEOLAIR-SR [Suspect]
     Indication: ASTHMA
  5. FORADIL [Suspect]
     Indication: ASTHMA
     Route: 055
  6. AXOTIDE DA 250 MCG [Suspect]
     Indication: ASTHMA
     Route: 055
  7. NEXIUM 20 MUPS [Concomitant]
     Indication: GASTROOESOPHAGEAL REFLUX DISEASE
  8. RHINOCORT 64 [Concomitant]
     Indication: CHRONIC SINUSITIS
     Route: 045

REACTIONS (4)
  - ASTHMA [None]
  - DRUG EFFECT DECREASED [None]
  - MUSCLE ATROPHY [None]
  - SKIN ATROPHY [None]
